FAERS Safety Report 20697896 (Version 1)
Quarter: 2022Q2

REPORT INFORMATION
  Report Type: Spontaneous
  Country: FR (occurrence: FR)
  Receive Date: 20220412
  Receipt Date: 20220412
  Transmission Date: 20220721
  Serious: Yes (Other)
  Sender: FDA-Public Use
  Company Number: FR-AFSSAPS-AVNT20220212

PATIENT
  Age: 60 Year
  Sex: Male

DRUGS (1)
  1. LOPERAMIDE [Suspect]
     Active Substance: LOPERAMIDE
     Indication: Product used for unknown indication
     Dosage: UNK (10 CPS / D FOR SEVERAL YEARS)
     Route: 048

REACTIONS (1)
  - Drug use disorder [Not Recovered/Not Resolved]
